FAERS Safety Report 4545979-2 (Version None)
Quarter: 2005Q1

REPORT INFORMATION
  Report Type: 
  Country: None (occurrence: None)
  Receive Date: 20050103
  Receipt Date: 20041221
  Transmission Date: 20050727
  Serious: Yes (Other)
  Sender: FDA-Public Use
  Company Number: 2004117989

PATIENT
  Age: 25 Year
  Sex: Female
  Weight: 58.9676 kg

DRUGS (2)
  1. DEPO-PROVERA [Suspect]
     Indication: CONTRACEPTION
     Dosage: SEE IMAGE
     Route: 030
     Dates: start: 19950101, end: 19950101
  2. DEPO-PROVERA [Suspect]
     Indication: CONTRACEPTION
     Dosage: SEE IMAGE
     Route: 030
     Dates: start: 20040907, end: 20040907

REACTIONS (8)
  - AMENORRHOEA [None]
  - ARTHRALGIA [None]
  - BONE DENSITY DECREASED [None]
  - CHONDROPATHY [None]
  - JOINT DISLOCATION [None]
  - LIGAMENT DISORDER [None]
  - OEDEMA PERIPHERAL [None]
  - SPORTS INJURY [None]
